FAERS Safety Report 5126600-1 (Version None)
Quarter: 2006Q4

REPORT INFORMATION
  Report Type: 
  Country: None (occurrence: None)
  Receive Date: 20061012
  Receipt Date: 20061012
  Transmission Date: 20070319
  Serious: No
  Sender: FDA-Public Use
  Company Number: None

PATIENT
  Sex: Female

DRUGS (2)
  1. ALOXI [Suspect]
     Indication: PROPHYLAXIS OF NAUSEA AND VOMITING
     Dosage: 250 MCG ONCE IV BOLUS
     Route: 040
     Dates: start: 20061010, end: 20061010
  2. ALOXI [Suspect]

REACTIONS (3)
  - INFUSION SITE SWELLING [None]
  - INFUSION SITE URTICARIA [None]
  - RASH [None]
